FAERS Safety Report 17503989 (Version 2)
Quarter: 2020Q2

REPORT INFORMATION
  Report Type: Spontaneous
  Country: US (occurrence: US)
  Receive Date: 20200305
  Receipt Date: 20200602
  Transmission Date: 20200713
  Serious: Yes (Other)
  Sender: FDA-Public Use
  Company Number: US-BAYER-2020-034814

PATIENT
  Sex: Female
  Weight: 61.22 kg

DRUGS (4)
  1. KOGENATE FS [Suspect]
     Active Substance: ANTIHEMOPHILIC FACTOR, HUMAN RECOMBINANT
     Indication: FACTOR VIII DEFICIENCY
     Dosage: 3 DOSES OVER 3 DAYS DUE TO RIGHT HAND BLEED
     Route: 042
  2. AZELASTINE HYDROCHLORIDE. [Concomitant]
     Active Substance: AZELASTINE HYDROCHLORIDE
  3. KOGENATE FS [Suspect]
     Active Substance: ANTIHEMOPHILIC FACTOR, HUMAN RECOMBINANT
     Indication: FACTOR VIII DEFICIENCY
     Dosage: INFUSE ~1,500 UNITS (+/-10%) INTO THE VEIN DAILY AS NEEDED
     Route: 042
     Dates: start: 201702
  4. KOGENATE FS [Suspect]
     Active Substance: ANTIHEMOPHILIC FACTOR, HUMAN RECOMBINANT
     Indication: FACTOR VIII DEFICIENCY
     Dosage: INFUSE ~1,500 UNITS (+/-10%) INTO THE VEIN DAILY AS NEEDED
     Route: 042
     Dates: start: 201702

REACTIONS (1)
  - Haemorrhage [None]
